FAERS Safety Report 5471520-6 (Version None)
Quarter: 2007Q3

REPORT INFORMATION
  Report Type: 
  Country: None (occurrence: None)
  Receive Date: 20070928
  Receipt Date: 20070112
  Transmission Date: 20080115
  Serious: No
  Sender: FDA-Public Use
  Company Number: US-BRISTOL-MYERS SQUIBB COMPANY-13608690

PATIENT
  Age: 63 Year
  Sex: Female

DRUGS (8)
  1. DEFINITY [Suspect]
     Indication: ECHOCARDIOGRAM
     Route: 042
     Dates: start: 20061211, end: 20061211
  2. ATENOLOL [Concomitant]
     Dates: start: 20060427
  3. FISH OIL [Concomitant]
  4. GLUCOSAMINE [Concomitant]
  5. MULTI-VITAMIN [Concomitant]
  6. ASPIRIN [Concomitant]
  7. CALCIUM [Concomitant]
  8. ATENOLOL [Concomitant]
     Route: 048
     Dates: start: 20060427

REACTIONS (4)
  - DRY THROAT [None]
  - HYPOTENSION [None]
  - PARAESTHESIA [None]
  - RASH [None]
